FAERS Safety Report 9719608 (Version 1)
Quarter: 2013Q4

REPORT INFORMATION
  Report Type: Spontaneous
  Country: US (occurrence: US)
  Receive Date: 20131128
  Receipt Date: 20131128
  Transmission Date: 20140711
  Serious: No
  Sender: FDA-Public Use
  Company Number: US-009507513-1311USA010121

PATIENT
  Sex: 0

DRUGS (2)
  1. JANUMET XR [Suspect]
     Indication: TYPE 2 DIABETES MELLITUS
     Dosage: STRENGTH: 1000/50, ONCE DAILY
     Route: 048
  2. JANUMET [Suspect]
     Dosage: UNK, TWICE DAILY
     Route: 048

REACTIONS (1)
  - Blood glucose increased [Recovered/Resolved]
